FAERS Safety Report 4977801-4 (Version None)
Quarter: 2006Q2

REPORT INFORMATION
  Report Type: 
  Country: None (occurrence: None)
  Receive Date: 20060417
  Receipt Date: 20060405
  Transmission Date: 20061013
  Serious: Yes (Other)
  Sender: FDA-Public Use
  Company Number: 2006048070

PATIENT
  Sex: Female

DRUGS (1)
  1. CELEBREX [Suspect]
     Indication: ILL-DEFINED DISORDER

REACTIONS (5)
  - BREAST CANCER FEMALE [None]
  - FEAR [None]
  - FEAR OF DISEASE [None]
  - HYSTERECTOMY [None]
  - OSTEOPOROSIS [None]
